FAERS Safety Report 13913118 (Version 1)
Quarter: 2017Q3

REPORT INFORMATION
  Report Type: Spontaneous
  Country: US (occurrence: US)
  Receive Date: 20170828
  Receipt Date: 20170828
  Transmission Date: 20171127
  Serious: No
  Sender: FDA-Public Use
  Company Number: US-ROCHE-1125382

PATIENT
  Age: 8 Year
  Sex: Female
  Weight: 15.8 kg

DRUGS (9)
  1. CYSTAGON [Concomitant]
     Active Substance: CYSTEAMINE BITARTRATE
     Dosage: EVERY DAY AFTER NOON
     Route: 065
  2. NUTROPIN [Suspect]
     Active Substance: SOMATROPIN
     Indication: CHRONIC KIDNEY DISEASE
     Route: 058
     Dates: start: 19991101
  3. CALCIUM CHLORIDE. [Concomitant]
     Active Substance: CALCIUM CHLORIDE
     Route: 065
  4. POLYCITRA [Concomitant]
     Route: 065
  5. CYSTAGON [Concomitant]
     Active Substance: CYSTEAMINE BITARTRATE
     Dosage: EVERY DAY BEFORE NOON
     Route: 065
  6. MAGNESIUM [Concomitant]
     Active Substance: MAGNESIUM
     Route: 065
  7. DHT [Concomitant]
     Route: 065
  8. CYSTEAMINE [Concomitant]
     Active Substance: CYSTEAMINE
     Route: 065
  9. CARNITOR [Concomitant]
     Active Substance: LEVOCARNITINE
     Route: 065

REACTIONS (2)
  - Gait disturbance [Unknown]
  - Arthralgia [Unknown]

NARRATIVE: CASE EVENT DATE: 20000215
